FAERS Safety Report 21467439 (Version 4)
Quarter: 2023Q1

REPORT INFORMATION
  Report Type: Report from Study
  Country: US (occurrence: US)
  Receive Date: 20221017
  Receipt Date: 20230115
  Transmission Date: 20230418
  Serious: Yes (Hospitalization, Other)
  Sender: FDA-Public Use
  Company Number: US-ABBVIE-4156398

PATIENT
  Age: 72 Year
  Sex: Male
  Weight: 94 kg

DRUGS (10)
  1. HUMIRA [Suspect]
     Active Substance: ADALIMUMAB
     Indication: Product used for unknown indication
     Dosage: 40 MG
     Route: 058
  2. SKYRIZI [Suspect]
     Active Substance: RISANKIZUMAB-RZAA
     Indication: Psoriasis
     Route: 058
     Dates: start: 20220904
  3. JANSSEN COVID-19 VACCINE [Concomitant]
     Active Substance: AD26.COV2.S
     Indication: COVID-19 immunisation
     Dosage: FREQUENCY- ONE IN ONCE
     Route: 030
  4. ATORVASTATIN [Concomitant]
     Active Substance: ATORVASTATIN
     Indication: Product used for unknown indication
     Dosage: 80 MG TABLET, 1 TABLETS ORAL EVERY DAY. REFILLS: 3
     Route: 048
  5. ASPIRIN [Concomitant]
     Active Substance: ASPIRIN
     Indication: Product used for unknown indication
     Dosage: 81 MG ORAL TABLET, EVERY DAY
     Route: 048
  6. BUPROPION [Concomitant]
     Active Substance: BUPROPION
     Indication: Product used for unknown indication
     Dosage: 150 MG/24 HOURS (XL) ORAL TABLET, EXTENDED RELEASE. TAKE 1 TABLET BY MOUTH EVERY 24 HOURS
     Route: 048
  7. CLOPIDOGREL [Concomitant]
     Active Substance: CLOPIDOGREL BISULFATE
     Indication: Product used for unknown indication
     Dosage: 75 MG, 1 TAB(S), ORAL, DAILY,
     Route: 050
  8. OMEPRAZOLE [Concomitant]
     Active Substance: OMEPRAZOLE
     Indication: Product used for unknown indication
     Dosage: 20 MG ORAL DELAYED RELEASE CAPSULE, 1 CAP ORAL EVERY DAY. REFILLS: 3.
     Route: 048
  9. TAMSULOSIN [Concomitant]
     Active Substance: TAMSULOSIN
     Indication: Product used for unknown indication
     Dosage: 0.4 MG ORAL CAPSULE, 1 CAP ORAL EVERY DAY. REFILLS: 11.
     Route: 048
  10. DILTIAZEM [Concomitant]
     Active Substance: DILTIAZEM
     Indication: Product used for unknown indication
     Dosage: 120 MG, 1 TAB(S), ORAL, DAILY
     Route: 048

REACTIONS (17)
  - Cerebrovascular accident [Recovering/Resolving]
  - Nephrolithiasis [Recovering/Resolving]
  - Transient ischaemic attack [Unknown]
  - Grip strength decreased [Unknown]
  - Hemiparesis [Unknown]
  - Blood urine present [Unknown]
  - Activated partial thromboplastin time prolonged [Unknown]
  - Blood glucose increased [Unknown]
  - Blood urea increased [Unknown]
  - Lacunar infarction [Unknown]
  - Balance disorder [Not Recovered/Not Resolved]
  - Affect lability [Unknown]
  - Palpitations [Unknown]
  - Glomerular filtration rate decreased [Unknown]
  - Blood triglycerides increased [Unknown]
  - Monocyte count increased [Unknown]
  - Blood creatinine increased [Unknown]

NARRATIVE: CASE EVENT DATE: 20230105
